FAERS Safety Report 16691415 (Version 12)
Quarter: 2019Q4

REPORT INFORMATION
  Report Type: Spontaneous
  Country: CA (occurrence: CA)
  Receive Date: 20190812
  Receipt Date: 20191225
  Transmission Date: 20200122
  Serious: Yes (Hospitalization, Other)
  Sender: FDA-Public Use
  Company Number: CA-CELLTRION INC.-2019CA023400

PATIENT

DRUGS (12)
  1. PREDNISONE. [Suspect]
     Active Substance: PREDNISONE
     Indication: COLITIS ULCERATIVE
     Dosage: 40 MG, TAPER
     Route: 048
     Dates: start: 201906
  2. PREDNISONE. [Suspect]
     Active Substance: PREDNISONE
     Dosage: 35 MG, UNK
     Route: 065
  3. DIPHENHYDRAMINE. [Concomitant]
     Active Substance: DIPHENHYDRAMINE
     Indication: PREMEDICATION
     Dosage: 50 MG, UNK
     Dates: start: 20190911
  4. INFLECTRA [Suspect]
     Active Substance: INFLIXIMAB-DYYB
     Dosage: 500 MG, AT WEEK 0 AND 2
     Route: 042
     Dates: start: 20190718, end: 20190721
  5. INFLECTRA [Suspect]
     Active Substance: INFLIXIMAB-DYYB
     Dosage: 900 MG, EVERY 2, 6 WEEKS, THEN EVERY 8 WEEKS
     Route: 042
     Dates: start: 20190802
  6. ACETAMINOPHEN. [Concomitant]
     Active Substance: ACETAMINOPHEN
     Indication: PREMEDICATION
     Dosage: 900 MG, UNK
     Dates: start: 20190911
  7. ACTONEL [Concomitant]
     Active Substance: RISEDRONATE SODIUM
     Indication: PROPHYLAXIS
     Dosage: 35 MG, WEEKLY
     Route: 048
     Dates: start: 201906
  8. INFLECTRA [Suspect]
     Active Substance: INFLIXIMAB-DYYB
     Dosage: 900 MG, EVERY 4 WEEKS
     Route: 042
     Dates: start: 20190911, end: 20190911
  9. INFLECTRA [Suspect]
     Active Substance: INFLIXIMAB-DYYB
     Indication: COLITIS ULCERATIVE
     Dosage: 500 MG, EVERY 0 (2 DOSES), 2, 6 WEEKS, THEN EVERY 8 WEEKS
     Route: 042
     Dates: start: 20190719
  10. INFLECTRA [Suspect]
     Active Substance: INFLIXIMAB-DYYB
     Dosage: 500 MG, EVERY 0 (2 DOSES), 2, 6 WEEKS, THEN EVERY 8 WEEKS
     Route: 042
     Dates: start: 20190721
  11. INFLECTRA [Suspect]
     Active Substance: INFLIXIMAB-DYYB
     Dosage: 900 MG, AT WEEK 6, THEN EVERY 8 WEEKS
     Route: 042
     Dates: start: 20190802, end: 20190816
  12. INFLECTRA [Suspect]
     Active Substance: INFLIXIMAB-DYYB
     Dosage: 900 MG, EVERY 2, 6 WEEKS, THEN EVERY 8 WEEKS
     Route: 042
     Dates: start: 20190816

REACTIONS (11)
  - Pneumocystis jirovecii pneumonia [Recovering/Resolving]
  - Off label use [Unknown]
  - Condition aggravated [Not Recovered/Not Resolved]
  - Body temperature fluctuation [Unknown]
  - Tachycardia [Not Recovered/Not Resolved]
  - Clostridium difficile colitis [Recovered/Resolved with Sequelae]
  - Flushing [Not Recovered/Not Resolved]
  - Inappropriate schedule of product administration [Unknown]
  - Heart rate irregular [Unknown]
  - Gastrointestinal inflammation [Unknown]
  - Pyrexia [Recovered/Resolved]

NARRATIVE: CASE EVENT DATE: 201907
